FAERS Safety Report 6312165-5 (Version None)
Quarter: 2009Q3

REPORT INFORMATION
  Report Type: 
  Country: None (occurrence: None)
  Receive Date: 20090813
  Receipt Date: 20090813
  Transmission Date: 20100115
  Serious: Yes (Life-Threatening, Hospitalization, Disabling)
  Sender: FDA-Public Use
  Company Number: None

PATIENT
  Age: 35 Year
  Sex: Female
  Weight: 83.4619 kg

DRUGS (1)
  1. YAZ [Suspect]
     Indication: POLYCYSTIC OVARIES
     Dosage: 1 DAILY PO
     Route: 048
     Dates: start: 20090517, end: 20090727

REACTIONS (3)
  - MUSCLE SPASMS [None]
  - PULMONARY EMBOLISM [None]
  - THROMBOSIS [None]
